FAERS Safety Report 19216213 (Version 4)
Quarter: 2021Q3

REPORT INFORMATION
  Report Type: Report from Study
  Country: US (occurrence: US)
  Receive Date: 20210505
  Receipt Date: 20210726
  Transmission Date: 20211014
  Serious: Yes (Hospitalization, Other)
  Sender: FDA-Public Use
  Company Number: US-TAIHO ONCOLOGY  INC-EU-2021-00576

PATIENT
  Age: 82 Year
  Sex: Male

DRUGS (11)
  1. LONSURF [Suspect]
     Active Substance: TIPIRACIL HYDROCHLORIDE\TRIFLURIDINE
     Dosage: CYCLE 2
     Route: 048
     Dates: start: 20210420
  2. OMEPRAZOLE. [Concomitant]
     Active Substance: OMEPRAZOLE
  3. LONSURF [Suspect]
     Active Substance: TIPIRACIL HYDROCHLORIDE\TRIFLURIDINE
     Indication: OESOPHAGEAL CARCINOMA
     Dosage: CYCLE 1
     Route: 048
     Dates: start: 20210215
  4. TRELEGY ELLIPTA [Concomitant]
     Active Substance: FLUTICASONE FUROATE\UMECLIDINIUM BROMIDE\VILANTEROL TRIFENATATE
     Indication: CHRONIC OBSTRUCTIVE PULMONARY DISEASE
     Dosage: IN THE MORNING
  5. FISH OIL [Concomitant]
     Active Substance: FISH OIL
  6. CRESEMBA [Concomitant]
     Active Substance: ISAVUCONAZONIUM SULFATE
     Indication: ASPERGILLUS INFECTION
     Dosage: 2 PILLS DAILY IN THE EVENING.
     Dates: start: 202103
  7. MUCINEX [Concomitant]
     Active Substance: GUAIFENESIN
  8. ALPRAZOLAM. [Concomitant]
     Active Substance: ALPRAZOLAM
     Indication: CHRONIC OBSTRUCTIVE PULMONARY DISEASE
     Dosage: IN THE MORNING
  9. LISINOPRIL. [Concomitant]
     Active Substance: LISINOPRIL
  10. INSULIN [Concomitant]
     Active Substance: INSULIN NOS
  11. HYPER?SAL [Concomitant]
     Active Substance: SODIUM CHLORIDE
     Indication: PNEUMONIA

REACTIONS (10)
  - White blood cell count decreased [Recovering/Resolving]
  - Pyrexia [Recovering/Resolving]
  - Pneumonia pseudomonal [Unknown]
  - Asthenia [Unknown]
  - Red blood cell count decreased [Recovered/Resolved]
  - Fatigue [Unknown]
  - Infection [Unknown]
  - Nausea [Unknown]
  - Blood potassium increased [Unknown]
  - Aspergillus infection [Unknown]

NARRATIVE: CASE EVENT DATE: 2021
